FAERS Safety Report 5303411-5 (Version None)
Quarter: 2007Q2

REPORT INFORMATION
  Report Type: 
  Country: None (occurrence: None)
  Receive Date: 20070420
  Receipt Date: 20070409
  Transmission Date: 20071010
  Serious: Yes (Other)
  Sender: FDA-Public Use
  Company Number: JP-ROCHE-492704

PATIENT

DRUGS (1)
  1. PEGASYS [Suspect]
     Route: 058

REACTIONS (1)
  - AUTOIMMUNE HEPATITIS [None]
